FAERS Safety Report 9170060 (Version 2)
Quarter: 2014Q3

REPORT INFORMATION
  Report Type: Spontaneous
  Country: US (occurrence: None)
  Receive Date: 20130313
  Receipt Date: 20140813
  Transmission Date: 20150326
  Serious: Yes (Hospitalization, Other)
  Sender: FDA-Public Use
  Company Number: 2013US001219

PATIENT
  Age: 56 Year
  Sex: Male
  Weight: 64.4 kg

DRUGS (6)
  1. ZOVIRAX (ACICLOVIR) [Concomitant]
  2. FLUCONAZOLE (FLUCONAZOLE) [Concomitant]
  3. ICLUSIG [Suspect]
     Active Substance: PONATINIB
     Indication: ACUTE LYMPHOCYTIC LEUKAEMIA
     Dosage: 45 MG,  QD,  ORAL?02/11/2013  TO  ONGOING
     Route: 048
     Dates: start: 20130211
  4. TOPROL (METOPROLOL SUCCINATE) [Concomitant]
  5. RANITIDINE [Concomitant]
     Active Substance: RANITIDINE\RANITIDINE HYDROCHLORIDE
  6. BACTRIM [Concomitant]
     Active Substance: SULFAMETHOXAZOLE\TRIMETHOPRIM

REACTIONS (2)
  - Anaemia [None]
  - Presyncope [None]

NARRATIVE: CASE EVENT DATE: 20130220
